FAERS Safety Report 8015578-9 (Version None)
Quarter: 2011Q4

REPORT INFORMATION
  Report Type: 
  Country: None (occurrence: None)
  Receive Date: 20111230
  Receipt Date: 20111227
  Transmission Date: 20120403
  Serious: Yes (Death, Other)
  Sender: FDA-Public Use
  Company Number: DE-SANOFI-AVENTIS-2011SA085140

PATIENT
  Age: 90 Year
  Sex: Male

DRUGS (16)
  1. RISPERDAL [Suspect]
     Route: 048
     Dates: start: 20110201, end: 20110205
  2. CAPTOPRIL [Concomitant]
     Route: 048
     Dates: end: 20110205
  3. ISOSORBIDE DINITRATE [Concomitant]
     Route: 048
     Dates: end: 20110205
  4. HALDOL [Suspect]
     Route: 048
     Dates: start: 20110130, end: 20110131
  5. MELPERONE [Suspect]
     Route: 048
     Dates: end: 20110124
  6. HALDOL [Suspect]
     Route: 048
     Dates: start: 20110201, end: 20110205
  7. ASPIRIN [Concomitant]
     Route: 048
     Dates: end: 20110205
  8. ALFUZOSIN HYDROCHLORIDE [Suspect]
     Route: 048
     Dates: end: 20110205
  9. HALDOL [Suspect]
     Route: 048
     Dates: start: 20110125, end: 20110129
  10. BISOPROLOL [Concomitant]
     Route: 048
     Dates: end: 20110205
  11. OXAZEPAM [Concomitant]
     Route: 048
     Dates: start: 20110124, end: 20110125
  12. OXAZEPAM [Concomitant]
     Route: 048
     Dates: start: 20110126, end: 20110205
  13. HYDROCHLOROTHIAZIDE [Concomitant]
     Route: 048
     Dates: end: 20110205
  14. REMINYL /UNK/ [Suspect]
     Route: 048
     Dates: end: 20110205
  15. RISPERDAL [Suspect]
     Route: 048
     Dates: end: 20110131
  16. MELPERONE [Suspect]
     Route: 048
     Dates: start: 20110125, end: 20110205

REACTIONS (2)
  - DEATH [None]
  - CIRCULATORY COLLAPSE [None]
